FAERS Safety Report 8956304 (Version 4)
Quarter: 2013Q3

REPORT INFORMATION
  Report Type: Report from Study
  Country: US (occurrence: US)
  Receive Date: 20121210
  Receipt Date: 20130719
  Transmission Date: 20140515
  Serious: Yes (Other)
  Sender: FDA-Public Use
  Company Number: US-ELI_LILLY_AND_COMPANY-US201211009424

PATIENT
  Age: 56 Year
  Sex: Female
  Weight: 61.68 kg

DRUGS (6)
  1. TERIPARATIDE [Suspect]
     Indication: OSTEOPOROSIS
     Dosage: 20 UG, QD
     Dates: start: 20130701
  2. TERIPARATIDE [Suspect]
     Dosage: 20 UG, QD
  3. NEXIUM [Concomitant]
  4. VIACTIV                            /00751501/ [Concomitant]
  5. VITAMIN D3 [Concomitant]
  6. PREMPRO [Concomitant]

REACTIONS (4)
  - Invasive ductal breast carcinoma [Recovering/Resolving]
  - Fatigue [Recovering/Resolving]
  - Muscle spasms [Recovering/Resolving]
  - Inappropriate schedule of drug administration [Unknown]
